FAERS Safety Report 15370784 (Version 1)
Quarter: 2018Q3

REPORT INFORMATION
  Report Type: Spontaneous
  Country: US (occurrence: US)
  Receive Date: 20180911
  Receipt Date: 20180911
  Transmission Date: 20181010
  Serious: No
  Sender: FDA-Public Use
  Company Number: US-EXELA PHARMA SCIENCES, LLC-2018EXL00016

PATIENT

DRUGS (1)
  1. NIPRIDE RTU [Suspect]
     Active Substance: SODIUM NITROPRUSSIDE
     Dosage: UNK

REACTIONS (1)
  - Extravasation [Unknown]
